FAERS Safety Report 20907227 (Version 1)
Quarter: 2022Q2

REPORT INFORMATION
  Report Type: Spontaneous
  Country: CN (occurrence: CN)
  Receive Date: 20220602
  Receipt Date: 20220602
  Transmission Date: 20220721
  Serious: Yes (Other)
  Sender: FDA-Public Use
  Company Number: CN-ELI_LILLY_AND_COMPANY-CN202205010643

PATIENT
  Age: 56 Year
  Sex: Female

DRUGS (6)
  1. ABEMACICLIB [Suspect]
     Active Substance: ABEMACICLIB
     Indication: Breast cancer
     Dosage: 150 MG, BID
     Route: 048
     Dates: start: 20220214, end: 20220414
  2. ABEMACICLIB [Suspect]
     Active Substance: ABEMACICLIB
     Indication: Metastases to lung
     Dosage: 100 MG, BID
     Route: 048
     Dates: start: 20220414, end: 20220518
  3. ABEMACICLIB [Suspect]
     Active Substance: ABEMACICLIB
     Indication: Metastases to bone
  4. ABEMACICLIB [Suspect]
     Active Substance: ABEMACICLIB
     Indication: Metastases to pleura
  5. ABEMACICLIB [Suspect]
     Active Substance: ABEMACICLIB
     Indication: Metastases to lymph nodes
  6. LETROZOLE [Concomitant]
     Active Substance: LETROZOLE
     Indication: Hormone therapy
     Dosage: 2.5 MG, DAILY
     Route: 048
     Dates: start: 20220214, end: 20220518

REACTIONS (4)
  - Protein urine present [Recovering/Resolving]
  - Blood creatinine increased [Recovering/Resolving]
  - Nausea [Unknown]
  - Vomiting [Unknown]

NARRATIVE: CASE EVENT DATE: 20220512
